FAERS Safety Report 13562247 (Version 1)
Quarter: 2017Q2

REPORT INFORMATION
  Report Type: Spontaneous
  Country: US (occurrence: US)
  Receive Date: 20170519
  Receipt Date: 20170519
  Transmission Date: 20170830
  Serious: Yes (Other)
  Sender: FDA-Public Use
  Company Number: US-ROCHE-1935041

PATIENT
  Sex: Female

DRUGS (1)
  1. RITUXAN [Suspect]
     Active Substance: RITUXIMAB
     Indication: GRANULOMATOSIS WITH POLYANGIITIS
     Route: 065
     Dates: start: 2008

REACTIONS (5)
  - Maternal exposure during pregnancy [Unknown]
  - Gallbladder non-functioning [Unknown]
  - Vomiting [Unknown]
  - Impaired gastric emptying [Unknown]
  - Pain [Unknown]
